FAERS Safety Report 8988554 (Version 1)
Quarter: 2012Q4

REPORT INFORMATION
  Report Type: 
  Country: BR (occurrence: BR)
  Receive Date: 20121228
  Receipt Date: 20121228
  Transmission Date: 20130627
  Serious: Yes (Other)
  Sender: FDA-Public Use
  Company Number: BR-PFIZER INC-2012331067

PATIENT
  Age: 52 Year
  Sex: Female
  Weight: 62 kg

DRUGS (2)
  1. FRONTAL [Suspect]
     Dosage: UNK
     Dates: start: 1991, end: 2002
  2. RIVOTRIL [Suspect]
     Dosage: UNK
     Dates: start: 2002, end: 2012

REACTIONS (3)
  - Cardiac disorder [Unknown]
  - Tremor [Unknown]
  - Anxiety [Unknown]
